APPROVED DRUG PRODUCT: KETOROLAC TROMETHAMINE
Active Ingredient: KETOROLAC TROMETHAMINE
Strength: 30MG/ML
Dosage Form/Route: INJECTABLE;INJECTION
Application: A077943 | Product #001
Applicant: WOCKHARDT BIO AG
Approved: Mar 27, 2007 | RLD: No | RS: No | Type: DISCN